FAERS Safety Report 5990114-7 (Version None)
Quarter: 2008Q4

REPORT INFORMATION
  Report Type: 
  Country: None (occurrence: None)
  Receive Date: 20081211
  Receipt Date: 20081201
  Transmission Date: 20090506
  Serious: Yes (Other)
  Sender: FDA-Public Use
  Company Number: GB-ALLERGAN-0815293US

PATIENT
  Sex: Female
  Weight: 76.8 kg

DRUGS (2)
  1. DYSPORT [Suspect]
     Indication: FACIAL SPASM
     Dosage: 20 DF, PRN
     Route: 057
     Dates: start: 20080903, end: 20080903
  2. OXYCONTIN [Concomitant]
     Indication: NEURALGIA
     Dosage: 30 MG, BID
     Route: 048
     Dates: start: 20070101

REACTIONS (5)
  - ANXIETY [None]
  - COUGH [None]
  - HEADACHE [None]
  - INFLUENZA LIKE ILLNESS [None]
  - SUICIDAL IDEATION [None]
